FAERS Safety Report 5507847-9 (Version None)
Quarter: 2007Q4

REPORT INFORMATION
  Report Type: 
  Country: None (occurrence: None)
  Receive Date: 20071101
  Receipt Date: 20070921
  Transmission Date: 20080405
  Serious: Yes (Other)
  Sender: FDA-Public Use
  Company Number: 2007EN000250

PATIENT
  Age: 39 Year
  Sex: Male
  Weight: 113.3993 kg

DRUGS (4)
  1. OPANA ER [Suspect]
     Indication: LUMBAR RADICULOPATHY
     Dosage: 20 MG;BID;PO
     Route: 048
     Dates: start: 20070920, end: 20070921
  2. VICOPROFEN [Concomitant]
  3. PERCOCET [Concomitant]
  4. SOMA [Concomitant]

REACTIONS (6)
  - ANXIETY [None]
  - DYSPNOEA [None]
  - HEADACHE [None]
  - HYPERHIDROSIS [None]
  - NAUSEA [None]
  - URTICARIA [None]
